FAERS Safety Report 11744258 (Version 1)
Quarter: 2015Q4

REPORT INFORMATION
  Report Type: Spontaneous
  Country: JP (occurrence: JP)
  Receive Date: 20151116
  Receipt Date: 20151116
  Transmission Date: 20160304
  Serious: Yes (Hospitalization)
  Sender: FDA-Public Use
  Company Number: JP-SUCAMPO PHARMA AMERICAS, LLC-SPI201501016

PATIENT
  Age: 53 Year
  Sex: Female

DRUGS (1)
  1. AMITIZA [Suspect]
     Active Substance: LUBIPROSTONE
     Indication: CONSTIPATION
     Dosage: 24 UNK, UNK
     Route: 048

REACTIONS (2)
  - Intestinal obstruction [Unknown]
  - Gastrointestinal hypomotility [Unknown]
